FAERS Safety Report 6167113-8 (Version None)
Quarter: 2009Q2

REPORT INFORMATION
  Report Type: 
  Country: None (occurrence: None)
  Receive Date: 20090424
  Receipt Date: 20090414
  Transmission Date: 20091009
  Serious: Yes (Death, Other)
  Sender: FDA-Public Use
  Company Number: ES-JNJFOC-20090403712

PATIENT

DRUGS (1)
  1. INFLIXIMAB [Suspect]
     Indication: GRAFT VERSUS HOST DISEASE
     Route: 042

REACTIONS (2)
  - CYTOMEGALOVIRUS INFECTION [None]
  - MALIGNANT NEOPLASM PROGRESSION [None]
